FAERS Safety Report 12936128 (Version 1)
Quarter: 2016Q4

REPORT INFORMATION
  Report Type: Spontaneous
  Country: PL (occurrence: PL)
  Receive Date: 20161114
  Receipt Date: 20161114
  Transmission Date: 20170207
  Serious: Yes (Other)
  Sender: FDA-Public Use
  Company Number: PHHY2016PL153381

PATIENT
  Age: 67 Year
  Sex: Female

DRUGS (5)
  1. ZOLEDRONIC ACID [Suspect]
     Active Substance: ZOLEDRONIC ACID
     Indication: PRODUCT USED FOR UNKNOWN INDICATION
     Route: 065
  2. PAZOPANIB [Suspect]
     Active Substance: PAZOPANIB
     Indication: CLEAR CELL RENAL CELL CARCINOMA
     Dosage: 800 MG, QD
     Route: 065
     Dates: start: 20130614
  3. CAPTOPRIL. [Concomitant]
     Active Substance: CAPTOPRIL
     Indication: PRODUCT USED FOR UNKNOWN INDICATION
     Route: 065
  4. PAZOPANIB [Suspect]
     Active Substance: PAZOPANIB
     Dosage: 600 MG, QD
     Route: 065
  5. PAZOPANIB [Suspect]
     Active Substance: PAZOPANIB
     Dosage: 400 MG, QD
     Route: 065
     Dates: start: 201310

REACTIONS (14)
  - Metastases to lung [Unknown]
  - Osteolysis [Unknown]
  - Hypertension [Unknown]
  - Transaminases increased [Unknown]
  - Diarrhoea [Unknown]
  - Acute myocardial infarction [Unknown]
  - Hypothyroidism [Unknown]
  - Vertebral lesion [Unknown]
  - Rash maculo-papular [Unknown]
  - Pain [Unknown]
  - Bone loss [Unknown]
  - Renal mass [Unknown]
  - Spinal pain [Unknown]
  - Spinal osteoarthritis [Unknown]
